FAERS Safety Report 7784021-7 (Version None)
Quarter: 2011Q3

REPORT INFORMATION
  Report Type: 
  Country: None (occurrence: None)
  Receive Date: 20110928
  Receipt Date: 20110922
  Transmission Date: 20111222
  Serious: Yes (Other)
  Sender: FDA-Public Use
  Company Number: US-MERCK-1012USA03781

PATIENT
  Age: 54 Year
  Sex: Female

DRUGS (8)
  1. VITAMINS (UNSPECIFIED) [Concomitant]
     Route: 065
     Dates: start: 19920101
  2. CALCIUM (UNSPECIFIED) [Concomitant]
     Route: 065
     Dates: start: 19920101
  3. FOSAMAX [Suspect]
     Indication: OSTEOPOROSIS
     Route: 048
     Dates: start: 19980401
  4. LEXAPRO [Concomitant]
     Route: 065
     Dates: start: 19920101
  5. FOSAMAX PLUS D [Suspect]
     Route: 048
  6. VITAMIN D (UNSPECIFIED) [Concomitant]
     Route: 065
     Dates: start: 19920101
  7. SYNTHROID [Concomitant]
     Route: 048
     Dates: start: 19920101
  8. PROZAC [Concomitant]
     Route: 065
     Dates: start: 19920101

REACTIONS (9)
  - FALL [None]
  - TOOTH FRACTURE [None]
  - ANXIETY [None]
  - TOOTHACHE [None]
  - BONE LOSS [None]
  - TOOTH DISORDER [None]
  - FEMUR FRACTURE [None]
  - VITAMIN D DEFICIENCY [None]
  - DEPRESSION [None]
